FAERS Safety Report 9013694 (Version 4)
Quarter: 2014Q1

REPORT INFORMATION
  Report Type: Spontaneous
  Country: US (occurrence: US)
  Receive Date: 20130115
  Receipt Date: 20140130
  Transmission Date: 20141002
  Serious: Yes (Hospitalization)
  Sender: FDA-Public Use
  Company Number: PHEH2013US000878

PATIENT
  Age: 45 Year
  Sex: Female

DRUGS (11)
  1. TEGRETOL [Suspect]
     Indication: GRAND MAL CONVULSION
     Dosage: 400 MG, BID
     Route: 048
  2. TEGRETOL [Suspect]
     Dosage: 2 DF (OF 200 MG), BID
  3. TEGRETOL [Suspect]
     Dosage: 1.5 DF (OF 200 MG), BID
  4. PHENOBARBITAL [Concomitant]
     Dosage: 60 MG, BID
  5. VITAMIN D [Concomitant]
     Dosage: UNK UKN, UNK
  6. VITAMIN C [Concomitant]
     Dosage: UNK UKN, UNK
  7. FLAXSEED OIL [Concomitant]
     Dosage: UNK UKN, UNK
  8. CALCIUM [Concomitant]
     Dosage: UNK UKN, UNK
  9. BIOTIN [Concomitant]
     Dosage: UNK UKN, UNK
  10. MULTI-VIT [Concomitant]
     Dosage: UNK UKN, UNK
  11. VITAMIN B [Concomitant]
     Dosage: UNK UKN, UNK

REACTIONS (7)
  - Head injury [Unknown]
  - Burns third degree [Unknown]
  - Burns second degree [Unknown]
  - Syncope [Unknown]
  - Convulsion [Unknown]
  - Intentional drug misuse [Unknown]
  - Alopecia [Unknown]
